FAERS Safety Report 21933026 (Version 2)
Quarter: 2023Q1

REPORT INFORMATION
  Report Type: Spontaneous
  Country: US (occurrence: US)
  Receive Date: 20230131
  Receipt Date: 20230203
  Transmission Date: 20230417
  Serious: Yes (Other)
  Sender: FDA-Public Use
  Company Number: US-BAYER-2023P004866

PATIENT
  Age: 31 Year
  Sex: Female

DRUGS (1)
  1. MIRENA [Suspect]
     Active Substance: LEVONORGESTREL
     Indication: Contraception
     Dosage: 20?G/DAY
     Route: 015
     Dates: start: 20210611, end: 20230117

REACTIONS (4)
  - Device breakage [None]
  - Device physical property issue [None]
  - Medical device entrapment [None]
  - Complication of device removal [None]

NARRATIVE: CASE EVENT DATE: 20230117
